FAERS Safety Report 7871114-9 (Version None)
Quarter: 2011Q4

REPORT INFORMATION
  Report Type: 
  Country: None (occurrence: None)
  Receive Date: 20111029
  Receipt Date: 20110224
  Transmission Date: 20120403
  Serious: No
  Sender: FDA-Public Use
  Company Number: US-AMGEN-USASP2011010703

PATIENT
  Age: 5 Year
  Sex: Female

DRUGS (2)
  1. ENBREL [Suspect]
     Indication: JUVENILE ARTHRITIS
     Dates: start: 20080501
  2. METHOTREXATE [Concomitant]

REACTIONS (4)
  - ARTHRALGIA [None]
  - JOINT SWELLING [None]
  - TEMPOROMANDIBULAR JOINT SYNDROME [None]
  - MOBILITY DECREASED [None]
